FAERS Safety Report 7902932-6 (Version None)
Quarter: 2011Q4

REPORT INFORMATION
  Report Type: 
  Country: None (occurrence: None)
  Receive Date: 20111109
  Receipt Date: 20111101
  Transmission Date: 20120403
  Serious: Yes (Hospitalization)
  Sender: FDA-Public Use
  Company Number: US-JNJFOC-20111009343

PATIENT
  Sex: Male
  Weight: 73.94 kg

DRUGS (2)
  1. EXTRA STRENGTH TYLENOL [Suspect]
     Indication: PYREXIA
     Route: 048
     Dates: start: 20100309, end: 20100312
  2. EXTRA STRENGTH TYLENOL [Suspect]
     Indication: OROPHARYNGEAL PAIN
     Route: 048
     Dates: start: 20100309, end: 20100312

REACTIONS (4)
  - GRAND MAL CONVULSION [None]
  - ACCIDENTAL OVERDOSE [None]
  - RENAL FAILURE ACUTE [None]
  - ACUTE HEPATIC FAILURE [None]
